FAERS Safety Report 5576742-1 (Version None)
Quarter: 2007Q4

REPORT INFORMATION
  Report Type: 
  Country: None (occurrence: None)
  Receive Date: 20071228
  Receipt Date: 20071219
  Transmission Date: 20080405
  Serious: Yes (Hospitalization)
  Sender: FDA-Public Use
  Company Number: US-JNJFOC-20061004532

PATIENT
  Sex: Female

DRUGS (2)
  1. ORTHO EVRA [Suspect]
     Indication: CONTRACEPTION
     Route: 062
  2. WELLBUTRIN [Concomitant]

REACTIONS (3)
  - CONVULSION [None]
  - INAPPROPRIATE SCHEDULE OF DRUG ADMINISTRATION [None]
  - ISCHAEMIC CEREBRAL INFARCTION [None]
